FAERS Safety Report 8107796-6 (Version None)
Quarter: 2012Q1

REPORT INFORMATION
  Report Type: 
  Country: None (occurrence: None)
  Receive Date: 20120202
  Receipt Date: 20120127
  Transmission Date: 20120608
  Serious: No
  Sender: FDA-Public Use
  Company Number: US-BAYER-2012-009669

PATIENT

DRUGS (1)
  1. CIPROFLOXACIN [Suspect]
     Route: 042

REACTIONS (2)
  - BURNING SENSATION [None]
  - INFUSION SITE PAIN [None]
